FAERS Safety Report 14562856 (Version 1)
Quarter: 2018Q1

REPORT INFORMATION
  Report Type: Spontaneous
  Country: US (occurrence: US)
  Receive Date: 20180221
  Receipt Date: 20180221
  Transmission Date: 20180509
  Serious: No
  Sender: FDA-Public Use
  Company Number: None

PATIENT
  Age: 65 Year
  Sex: Female

DRUGS (17)
  1. ESTRADIOL. [Concomitant]
     Active Substance: ESTRADIOL
  2. OMEGA 3 [Concomitant]
     Active Substance: OMEGA-3 FATTY ACIDS
  3. MYRBETRIQ [Concomitant]
     Active Substance: MIRABEGRON
  4. VITAMIN D3 [Concomitant]
     Active Substance: CHOLECALCIFEROL
  5. CLOBETASOL [Concomitant]
     Active Substance: CLOBETASOL
  6. ATENOLOL. [Concomitant]
     Active Substance: ATENOLOL
  7. PANTOPRAZOLE [Concomitant]
     Active Substance: PANTOPRAZOLE
  8. MYRBETRIQ [Concomitant]
     Active Substance: MIRABEGRON
  9. PREDNISONE. [Concomitant]
     Active Substance: PREDNISONE
  10. ACTIGALL [Concomitant]
     Active Substance: URSODIOL
  11. LIDODERM [Concomitant]
     Active Substance: LIDOCAINE
  12. B6 NATURAL [Concomitant]
  13. LYRICA [Concomitant]
     Active Substance: PREGABALIN
  14. ARMOUR THYROID [Concomitant]
     Active Substance: THYROID, PORCINE
  15. ALPRAZOLAM. [Concomitant]
     Active Substance: ALPRAZOLAM
  16. OCALIVA [Suspect]
     Active Substance: OBETICHOLIC ACID
     Indication: PRIMARY BILIARY CHOLANGITIS
     Route: 048
     Dates: start: 20170927
  17. BACLOFEN. [Concomitant]
     Active Substance: BACLOFEN

REACTIONS (3)
  - Drug ineffective [None]
  - Vomiting [None]
  - Nausea [None]

NARRATIVE: CASE EVENT DATE: 20180216
